FAERS Safety Report 5277937-7 (Version None)
Quarter: 2007Q1

REPORT INFORMATION
  Report Type: 
  Country: None (occurrence: None)
  Receive Date: 20070327
  Receipt Date: 20070315
  Transmission Date: 20070707
  Serious: Yes (Death)
  Sender: FDA-Public Use
  Company Number: GB-PFIZER INC-2007022661

PATIENT
  Age: 6 Year
  Sex: Female

DRUGS (3)
  1. EPIRUBICIN HYDROCHLORIDE [Suspect]
     Indication: RHABDOMYOSARCOMA
     Dosage: DAILY DOSE:150MG/M*2
  2. CARBOPLATIN [Suspect]
     Indication: RHABDOMYOSARCOMA
  3. VINCRISTINE SULFATE [Suspect]
     Indication: RHABDOMYOSARCOMA

REACTIONS (6)
  - BETA HAEMOLYTIC STREPTOCOCCAL INFECTION [None]
  - CANDIDA SEROLOGY POSITIVE [None]
  - FEBRILE NEUTROPENIA [None]
  - PNEUMONITIS [None]
  - PNEUMOTHORAX [None]
  - RESPIRATORY FAILURE [None]
